FAERS Safety Report 7156988-1 (Version None)
Quarter: 2010Q4

REPORT INFORMATION
  Report Type: 
  Country: None (occurrence: None)
  Receive Date: 20101214
  Receipt Date: 20100113
  Transmission Date: 20110411
  Serious: Yes (Life-Threatening, Hospitalization)
  Sender: FDA-Public Use
  Company Number: US-ASTRAZENECA-2010SE01659

PATIENT
  Age: 53 Year
  Sex: Male

DRUGS (3)
  1. CRESTOR [Suspect]
     Route: 048
  2. LISINOPRIL [Concomitant]
     Route: 048
  3. PROZAC [Concomitant]
     Route: 065

REACTIONS (2)
  - MYALGIA [None]
  - RHABDOMYOLYSIS [None]
